FAERS Safety Report 20350552 (Version 1)
Quarter: 2022Q1

REPORT INFORMATION
  Report Type: Spontaneous
  Country: US (occurrence: None)
  Receive Date: 20220119
  Receipt Date: 20220119
  Transmission Date: 20220423
  Serious: No
  Sender: FDA-Public Use
  Company Number: None

PATIENT
  Age: 47 Year
  Sex: Male

DRUGS (1)
  1. SOFOSBUVIR AND VELPATASVIR [Suspect]
     Active Substance: SOFOSBUVIR\VELPATASVIR
     Indication: Hepatitis C
     Dosage: OTHER FREQUENCY : 400-100MG DAILY;?
     Route: 048
     Dates: start: 202111

REACTIONS (2)
  - Headache [None]
  - Therapy interrupted [None]

NARRATIVE: CASE EVENT DATE: 20220112
